FAERS Safety Report 25491536 (Version 1)
Quarter: 2025Q2

REPORT INFORMATION
  Report Type: Spontaneous
  Country: GB (occurrence: GB)
  Receive Date: 20250629
  Receipt Date: 20250629
  Transmission Date: 20250716
  Serious: Yes (Other)
  Sender: B. BRAUN MEDICAL INC.
  Company Number: GB-SCD-015422

PATIENT
  Sex: Female

DRUGS (1)
  1. ACETAMINOPHEN [Suspect]
     Active Substance: ACETAMINOPHEN
     Indication: Product used for unknown indication

REACTIONS (7)
  - Intracranial pressure increased [Recovered/Resolved]
  - Pupil fixed [Recovered/Resolved]
  - Cranial nerve paralysis [Recovered/Resolved]
  - Brain oedema [Recovered/Resolved]
  - Acute hepatic failure [Unknown]
  - Hyperammonaemia [Unknown]
  - Overdose [Unknown]
